FAERS Safety Report 19954560 (Version 1)
Quarter: 2021Q4

REPORT INFORMATION
  Report Type: Spontaneous
  Country: US (occurrence: US)
  Receive Date: 20211011
  Receipt Date: 20211011
  Transmission Date: 20220303
  Serious: Yes (Hospitalization)
  Sender: FDA-Public Use
  Company Number: None

PATIENT
  Sex: Female

DRUGS (2)
  1. SILDENAFIL [Suspect]
     Active Substance: SILDENAFIL
     Indication: Hypoplastic left heart syndrome
     Dosage: 10 MG(1ML)
     Route: 048
  2. SILDENAFIL [Suspect]
     Active Substance: SILDENAFIL
     Route: 048

REACTIONS (1)
  - Cardiac operation [None]
